FAERS Safety Report 21552157 (Version 1)
Quarter: 2022Q4

REPORT INFORMATION
  Report Type: Report from Study
  Country: CA (occurrence: CA)
  Receive Date: 20221104
  Receipt Date: 20221104
  Transmission Date: 20230112
  Serious: Yes (Death)
  Sender: FDA-Public Use
  Company Number: CA-BEH-2022151621

PATIENT
  Age: 79 Year
  Sex: Female
  Weight: 83 kg

DRUGS (12)
  1. HIZENTRA [Suspect]
     Active Substance: HUMAN IMMUNOGLOBULIN G
     Indication: Secondary immunodeficiency
     Dosage: 12 GRAM, QW
     Route: 065
     Dates: start: 20170823
  2. HUMALOG [Concomitant]
     Active Substance: INSULIN LISPRO
  3. LANTUS [Concomitant]
     Active Substance: INSULIN GLARGINE
  4. GABAPENTIN [Concomitant]
     Active Substance: GABAPENTIN
  5. NORTRIPTYLINE [Concomitant]
     Active Substance: NORTRIPTYLINE
  6. DOXYCYCLINE CALCIUM [Concomitant]
     Active Substance: DOXYCYCLINE CALCIUM
  7. RAMIPRIL [Concomitant]
     Active Substance: RAMIPRIL
  8. TRAMADOL HYDROCHLORIDE [Concomitant]
     Active Substance: TRAMADOL HYDROCHLORIDE
  9. ATORVASTATIN [Concomitant]
     Active Substance: ATORVASTATIN
  10. DEXILANT [Concomitant]
     Active Substance: DEXLANSOPRAZOLE
  11. TRADJENTA [Concomitant]
     Active Substance: LINAGLIPTIN
  12. ZOPICLONE [Concomitant]
     Active Substance: ZOPICLONE

REACTIONS (1)
  - Death [Fatal]

NARRATIVE: CASE EVENT DATE: 20220401
